FAERS Safety Report 19745195 (Version 1)
Quarter: 2021Q3

REPORT INFORMATION
  Report Type: Spontaneous
  Country: CN (occurrence: CN)
  Receive Date: 20210825
  Receipt Date: 20210825
  Transmission Date: 20211014
  Serious: Yes (Other)
  Sender: FDA-Public Use
  Company Number: CN-PFIZER INC-202101042190

PATIENT
  Age: 2 Year
  Sex: Male
  Weight: 13.5 kg

DRUGS (8)
  1. SOLU?MEDROL [Suspect]
     Active Substance: METHYLPREDNISOLONE SODIUM SUCCINATE
     Indication: SLEEP APNOEA SYNDROME
     Dosage: 10 MG, 1X/DAY
     Route: 041
     Dates: start: 20210624, end: 20210624
  2. CEFUROXIME SODIUM. [Suspect]
     Active Substance: CEFUROXIME SODIUM
     Indication: ADENOIDAL HYPERTROPHY
  3. SOLU?MEDROL [Suspect]
     Active Substance: METHYLPREDNISOLONE SODIUM SUCCINATE
     Indication: CHRONIC TONSILLITIS
  4. SOLU?MEDROL [Suspect]
     Active Substance: METHYLPREDNISOLONE SODIUM SUCCINATE
     Indication: ADENOIDAL HYPERTROPHY
  5. CEFUROXIME SODIUM. [Suspect]
     Active Substance: CEFUROXIME SODIUM
     Indication: SLEEP APNOEA SYNDROME
     Dosage: 0.375 G, 2X/DAY
     Route: 041
     Dates: start: 20210624, end: 20210624
  6. CEFUROXIME SODIUM. [Suspect]
     Active Substance: CEFUROXIME SODIUM
     Indication: CHRONIC TONSILLITIS
  7. SODIUM CHLORIDE. [Concomitant]
     Active Substance: SODIUM CHLORIDE
     Dosage: 100 ML, 1X/DAY
     Route: 041
     Dates: start: 20210624, end: 20210624
  8. SODIUM CHLORIDE. [Concomitant]
     Active Substance: SODIUM CHLORIDE
     Indication: VEHICLE SOLUTION USE
     Dosage: 100 ML, 2X/DAY
     Route: 041
     Dates: start: 20210624, end: 20210624

REACTIONS (5)
  - Pruritus [Recovering/Resolving]
  - Drug eruption [Recovering/Resolving]
  - Flushing [Recovering/Resolving]
  - Rash maculo-papular [Recovering/Resolving]
  - Off label use [Unknown]

NARRATIVE: CASE EVENT DATE: 20210624
